FAERS Safety Report 14543834 (Version 11)
Quarter: 2020Q2

REPORT INFORMATION
  Report Type: Spontaneous
  Country: US (occurrence: US)
  Receive Date: 20180216
  Receipt Date: 20200415
  Transmission Date: 20200713
  Serious: Yes (Hospitalization, Other)
  Sender: FDA-Public Use
  Company Number: US-ACTELION-A-NJ2018-167927

PATIENT
  Sex: Female
  Weight: 66.21 kg

DRUGS (9)
  1. ADCIRCA [Concomitant]
     Active Substance: TADALAFIL
  2. VELETRI [Suspect]
     Active Substance: EPOPROSTENOL
     Dosage: 11 NG/KG, PER MIN
     Route: 042
  3. VELETRI [Suspect]
     Active Substance: EPOPROSTENOL
     Indication: PULMONARY ARTERIAL HYPERTENSION
     Dosage: 9 NG/KG, PER MIN
     Route: 042
  4. OPSUMIT [Concomitant]
     Active Substance: MACITENTAN
  5. VELETRI [Suspect]
     Active Substance: EPOPROSTENOL
     Dosage: 10 NG/KG, PER MIN
     Route: 042
  6. VELETRI [Suspect]
     Active Substance: EPOPROSTENOL
     Dosage: 12 NG/KG, PER MIN
     Route: 042
  7. VELETRI [Suspect]
     Active Substance: EPOPROSTENOL
     Dosage: 14 NG/KG, PER MIN
     Route: 042
  8. SILDENAFIL CITRATE. [Concomitant]
     Active Substance: SILDENAFIL CITRATE
  9. VELETRI [Suspect]
     Active Substance: EPOPROSTENOL
     Dosage: 15 NG/KG, PER MIN
     Route: 042

REACTIONS (16)
  - Dyspnoea [Unknown]
  - Flushing [Unknown]
  - Dyspnoea exertional [Unknown]
  - Catheter site infection [Recovered/Resolved]
  - Pain [Unknown]
  - Product administration error [Recovered/Resolved]
  - Pain in extremity [Unknown]
  - Palpitations [Unknown]
  - Hospitalisation [Unknown]
  - Headache [Unknown]
  - Emergency care [Unknown]
  - Pain in jaw [Unknown]
  - Lung transplant [Unknown]
  - Myalgia [Unknown]
  - Acute kidney injury [Unknown]
  - Adverse event [Unknown]
